FAERS Safety Report 9041887 (Version 1)
Quarter: 2013Q1

REPORT INFORMATION
  Report Type: Report from Study
  Country: US (occurrence: US)
  Receive Date: 20130129
  Receipt Date: 20130129
  Transmission Date: 20140127
  Serious: Yes (Other)
  Sender: FDA-Public Use
  Company Number: US-ABBOTT-12P-163-0893334-00

PATIENT
  Sex: Male
  Weight: 90.35 kg

DRUGS (11)
  1. HUMIRA 40 MG/0.8 ML PEN [Suspect]
     Indication: PSORIASIS
     Route: 058
     Dates: start: 201104, end: 201109
  2. HUMIRA 40 MG/0.8 ML PEN [Suspect]
     Dates: start: 201112
  3. LISINOPRIL [Concomitant]
     Indication: METABOLIC SYNDROME
  4. ALLOPURINOL [Concomitant]
     Indication: NEPHROLITHIASIS
  5. GEMFIBRIZOL [Concomitant]
     Indication: PRODUCT USED FOR UNKNOWN INDICATION
  6. LOVASTATIN [Concomitant]
     Indication: PRODUCT USED FOR UNKNOWN INDICATION
  7. K CITRATE [Concomitant]
     Indication: RENAL LITHIASIS PROPHYLAXIS
  8. BYETTA [Concomitant]
     Indication: DIABETES MELLITUS
  9. HUMULIN N [Concomitant]
     Indication: DIABETES MELLITUS
     Dosage: PRN
  10. FISH OIL [Concomitant]
     Indication: PRODUCT USED FOR UNKNOWN INDICATION
  11. ASA [Concomitant]
     Indication: PRODUCT USED FOR UNKNOWN INDICATION

REACTIONS (2)
  - Nephrolithiasis [Recovered/Resolved]
  - Drug effect decreased [Not Recovered/Not Resolved]
